FAERS Safety Report 7916862-7 (Version None)
Quarter: 2011Q4

REPORT INFORMATION
  Report Type: 
  Country: None (occurrence: None)
  Receive Date: 20111114
  Receipt Date: 20111102
  Transmission Date: 20120403
  Serious: Yes (Death, Hospitalization)
  Sender: FDA-Public Use
  Company Number: TCI2011A04330

PATIENT
  Age: 61 Year
  Sex: Female

DRUGS (7)
  1. BLOPRESS TABLETS 4(CANDESARTAN CILEXETIL) [Concomitant]
  2. COROHERSER R (DILTIAZEM HYDROCHLORIDE) [Concomitant]
  3. ASVERIN (TIPEPIDINE HIBENZATE) [Concomitant]
  4. TALION (BEPOTASTINE BESILATE) [Concomitant]
  5. ISOSORBIDE MONONITRATE [Concomitant]
  6. MUCOSTA (REBAMIPIDE) [Concomitant]
  7. ACTOS [Suspect]
     Indication: DIABETES MELLITUS
     Dosage: 15 MG (15 MG, 1 IN 1 D)
     Route: 048
     Dates: start: 20070828, end: 20090411

REACTIONS (8)
  - BLADDER TRANSITIONAL CELL CARCINOMA [None]
  - METASTASES TO BONE [None]
  - METASTASES TO LIVER [None]
  - RENAL CYST [None]
  - LYMPHADENOPATHY [None]
  - METASTASES TO LUNG [None]
  - METASTASES TO LYMPH NODES [None]
  - HAEMANGIOMA OF LIVER [None]
